FAERS Safety Report 18217209 (Version 1)
Quarter: 2020Q3

REPORT INFORMATION
  Report Type: Spontaneous
  Country: US (occurrence: US)
  Receive Date: 20200831
  Receipt Date: 20200831
  Transmission Date: 20201103
  Serious: No
  Sender: FDA-Public Use
  Company Number: None

PATIENT
  Age: 60 Year
  Sex: Male
  Weight: 144.7 kg

DRUGS (1)
  1. MEROPENEM (MEROPENEM 1GM/VIL INJ) [Suspect]
     Active Substance: MEROPENEM
     Indication: URINARY TRACT INFECTION
     Dosage: ?          OTHER STRENGTH:1GM/VIL;?
     Route: 042
     Dates: start: 20200428, end: 20200428

REACTIONS (5)
  - Urticaria [None]
  - Vomiting [None]
  - Tachycardia [None]
  - Dyspnoea [None]
  - Pruritus [None]

NARRATIVE: CASE EVENT DATE: 20200428
